FAERS Safety Report 19484219 (Version 1)
Quarter: 2021Q3

REPORT INFORMATION
  Report Type: Spontaneous
  Country: US (occurrence: US)
  Receive Date: 20210701
  Receipt Date: 20210701
  Transmission Date: 20211014
  Serious: Yes (Other)
  Sender: FDA-Public Use
  Company Number: US-PFIZER INC-2020285467

PATIENT
  Age: 65 Year
  Sex: Female

DRUGS (1)
  1. IBRANCE [Suspect]
     Active Substance: PALBOCICLIB
     Dosage: 125 MG

REACTIONS (11)
  - Drug abuse [Unknown]
  - Eye disorder [Unknown]
  - Blindness unilateral [Unknown]
  - Sleep disorder [Unknown]
  - Psychomotor hyperactivity [Unknown]
  - Product dose omission issue [Unknown]
  - Anger [Unknown]
  - Back disorder [Unknown]
  - Fatigue [Unknown]
  - Gingival pain [Unknown]
  - Neoplasm progression [Unknown]
